FAERS Safety Report 12247010 (Version 4)
Quarter: 2016Q2

REPORT INFORMATION
  Report Type: Report from Study
  Country: PA (occurrence: PA)
  Receive Date: 20160407
  Receipt Date: 20160606
  Transmission Date: 20160815
  Serious: Yes (Death, Other)
  Sender: FDA-Public Use
  Company Number: PHHY2016PA028686

PATIENT
  Age: 83 Year
  Sex: Male
  Weight: 63.49 kg

DRUGS (1)
  1. AFINITOR [Suspect]
     Active Substance: EVEROLIMUS
     Indication: COLON CANCER METASTATIC
     Dosage: 10 MG, QD
     Route: 048
     Dates: start: 201507

REACTIONS (10)
  - Death [Fatal]
  - Dizziness [Unknown]
  - Vomiting [Unknown]
  - Drug ineffective [Unknown]
  - Malaise [Unknown]
  - Swelling [Unknown]
  - Pruritus [Recovering/Resolving]
  - Product use issue [Unknown]
  - Depressed level of consciousness [Unknown]
  - Fatigue [Unknown]

NARRATIVE: CASE EVENT DATE: 20160506
